FAERS Safety Report 18622820 (Version 1)
Quarter: 2020Q4

REPORT INFORMATION
  Report Type: Spontaneous
  Country: FR (occurrence: FR)
  Receive Date: 20201216
  Receipt Date: 20201216
  Transmission Date: 20210114
  Serious: Yes (Hospitalization)
  Sender: FDA-Public Use
  Company Number: FR-TEVA-2020-FR-1858244

PATIENT
  Age: 73 Year
  Sex: Female
  Weight: 56 kg

DRUGS (3)
  1. METHOTREXATE MYLAN [Suspect]
     Active Substance: METHOTREXATE SODIUM
     Indication: CENTRAL NERVOUS SYSTEM LYMPHOMA
     Dosage: 6240MG
     Route: 042
     Dates: start: 20201109, end: 20201123
  2. ONDANSETRON RENAUDIN [Suspect]
     Active Substance: ONDANSETRON HYDROCHLORIDE
     Indication: CENTRAL NERVOUS SYSTEM LYMPHOMA
     Dosage: 8MG
     Route: 042
     Dates: start: 20201109, end: 20201123
  3. VINCRISTINE TEVA [Suspect]
     Active Substance: VINCRISTINE
     Indication: CENTRAL NERVOUS SYSTEM LYMPHOMA
     Dosage: 4MILLICURIES
     Route: 042
     Dates: start: 20201109, end: 20201123

REACTIONS (3)
  - Altered state of consciousness [Recovered/Resolved]
  - Rash [Recovered/Resolved]
  - Respiratory rate decreased [Recovered/Resolved]

NARRATIVE: CASE EVENT DATE: 20201109
